FAERS Safety Report 4421854-9 (Version None)
Quarter: 2004Q3

REPORT INFORMATION
  Report Type: 
  Country: None (occurrence: None)
  Receive Date: 20040805
  Receipt Date: 20040805
  Transmission Date: 20050211
  Serious: Yes (Other)
  Sender: FDA-Public Use
  Company Number: None

PATIENT
  Age: 67 Year
  Sex: Male
  Weight: 90.3 kg

DRUGS (6)
  1. OMEPRAZOLE [Suspect]
  2. SIDENAFIL CITRATE [Concomitant]
  3. GABAPENTIN [Concomitant]
  4. HYDROCHLOROTHIAZIDE [Concomitant]
  5. IRBESARTAN [Concomitant]
  6. SIMVASTATIN [Concomitant]

REACTIONS (3)
  - GASTROINTESTINAL DISORDER [None]
  - NAUSEA [None]
  - VOMITING [None]
